FAERS Safety Report 23775750 (Version 2)
Quarter: 2024Q2

REPORT INFORMATION
  Report Type: Spontaneous
  Country: JP (occurrence: JP)
  Receive Date: 20240423
  Receipt Date: 20240621
  Transmission Date: 20240716
  Serious: Yes (Death, Hospitalization, Other)
  Sender: FDA-Public Use
  Company Number: JP-MSD-M2024-08596

PATIENT
  Age: 68 Year
  Sex: Male

DRUGS (2)
  1. KEYTRUDA [Suspect]
     Active Substance: PEMBROLIZUMAB
     Indication: Transitional cell cancer of the renal pelvis and ureter
     Dosage: 200 MILLIGRAM, Q3W
     Route: 041
     Dates: start: 202304, end: 2023
  2. KEYTRUDA [Suspect]
     Active Substance: PEMBROLIZUMAB
     Dosage: 200 MILLIGRAM, Q3W
     Route: 041
     Dates: start: 202401, end: 2024

REACTIONS (12)
  - Melaena [Unknown]
  - Cardiac failure [Unknown]
  - Pelvic haematoma [Unknown]
  - Retroperitoneal haemorrhage [Unknown]
  - Malignant neoplasm progression [Fatal]
  - Disseminated intravascular coagulation [Fatal]
  - Muscle haemorrhage [Unknown]
  - Anaemia [Recovered/Resolved]
  - Blood fibrinogen decreased [Unknown]
  - Hyponatraemia [Unknown]
  - Platelet count decreased [Unknown]
  - Anaemia [Unknown]

NARRATIVE: CASE EVENT DATE: 20230101
